FAERS Safety Report 8311354-8 (Version None)
Quarter: 2012Q2

REPORT INFORMATION
  Report Type: 
  Country: None (occurrence: None)
  Receive Date: 20120425
  Receipt Date: 20120424
  Transmission Date: 20120825
  Serious: Yes (Life-Threatening, Other)
  Sender: FDA-Public Use
  Company Number: RU-BAYER-2012-039677

PATIENT
  Age: 51 Year
  Sex: Female

DRUGS (1)
  1. ULTRAVIST 150 [Suspect]
     Route: 042

REACTIONS (2)
  - ANGIOEDEMA [None]
  - URTICARIA [None]
